FAERS Safety Report 15729933 (Version 1)
Quarter: 2018Q4

REPORT INFORMATION
  Report Type: Spontaneous
  Country: US (occurrence: US)
  Receive Date: 20181216
  Receipt Date: 20181216
  Transmission Date: 20190205
  Serious: Yes (Hospitalization)
  Sender: FDA-Public Use
  Company Number: None

PATIENT
  Age: 84 Year
  Sex: Female

DRUGS (2)
  1. REPATHA [Suspect]
     Active Substance: EVOLOCUMAB
     Indication: HYPERCHOLESTEROLAEMIA
     Dosage: ?          OTHER FREQUENCY:ONCE MONTHLY UD;?
     Route: 058
     Dates: start: 20180919
  2. NONE LISTED [Concomitant]

REACTIONS (2)
  - Atrial fibrillation [None]
  - Urinary tract infection [None]

NARRATIVE: CASE EVENT DATE: 20181207
